FAERS Safety Report 18569991 (Version 2)
Quarter: 2022Q3

REPORT INFORMATION
  Report Type: Spontaneous
  Country: US (occurrence: US)
  Receive Date: 20201202
  Receipt Date: 20220905
  Transmission Date: 20221026
  Serious: Yes (Life-Threatening, Hospitalization, Other)
  Sender: FDA-Public Use
  Company Number: US-MLMSERVICE-20201117-2585189-1

PATIENT
  Age: 33 Year
  Sex: Male

DRUGS (11)
  1. TACROLIMUS [Suspect]
     Active Substance: TACROLIMUS
     Indication: Immunosuppressant drug therapy
     Dosage: UNK
     Route: 048
  2. TACROLIMUS [Suspect]
     Active Substance: TACROLIMUS
     Dosage: 0.5 MILLIGRAM, BID
     Route: 048
  3. MYCOPHENOLATE MOFETIL [Suspect]
     Active Substance: MYCOPHENOLATE MOFETIL
     Indication: Immunosuppressant drug therapy
     Dosage: 250 MILLIGRAM, BID
     Route: 048
  4. MYCOPHENOLATE MOFETIL [Suspect]
     Active Substance: MYCOPHENOLATE MOFETIL
     Dosage: UNK
     Route: 048
  5. BASILIXIMAB [Suspect]
     Active Substance: BASILIXIMAB
     Indication: Immunosuppressant drug therapy
     Dosage: 20 MILLIGRAM, SINGLE (TOTAL DOSE)
     Route: 065
  6. METHYLPREDNISOLONE [Suspect]
     Active Substance: METHYLPREDNISOLONE
     Indication: Immunosuppressant drug therapy
     Dosage: 24 MILLIGRAM, QD
     Route: 048
  7. METHYLPREDNISOLONE [Suspect]
     Active Substance: METHYLPREDNISOLONE
     Dosage: UNK
     Route: 048
  8. METHYLPREDNISOLONE [Suspect]
     Active Substance: METHYLPREDNISOLONE
     Dosage: 4 MILLIGRAM, QD
     Route: 048
  9. CASPOFUNGIN [Concomitant]
     Active Substance: CASPOFUNGIN
     Indication: Infection prophylaxis
     Dosage: UNK
     Route: 065
  10. LINEZOLID [Concomitant]
     Active Substance: LINEZOLID
     Indication: Infection prophylaxis
     Dosage: UNK
     Route: 065
  11. THYMOCYTE IMMUNE GLOBULIN NOS [Concomitant]
     Active Substance: THYMOCYTE IMMUNE GLOBULIN NOS
     Indication: Prophylaxis against transplant rejection
     Dosage: 175 MILLIGRAM (TOTAL)
     Route: 048

REACTIONS (6)
  - Splenic haemorrhage [Unknown]
  - Shock [Unknown]
  - Splenic rupture [Unknown]
  - Splenic necrosis [Unknown]
  - Pulmonary mucormycosis [Unknown]
  - Splenic infection fungal [Unknown]
